FAERS Safety Report 11218224 (Version 3)
Quarter: 2015Q3

REPORT INFORMATION
  Report Type: Spontaneous
  Country: JP (occurrence: JP)
  Receive Date: 20150625
  Receipt Date: 20150805
  Transmission Date: 20151125
  Serious: Yes (Hospitalization)
  Sender: FDA-Public Use
  Company Number: JP-ASTRAZENECA-2015SE61000

PATIENT
  Age: 33360 Day
  Sex: Male
  Weight: 55 kg

DRUGS (9)
  1. AIPHAGAN [Concomitant]
     Active Substance: BRIMONIDINE TARTRATE
     Indication: GLAUCOMA
     Dosage: DOSE UNKNOWN (ADMINISTERED TO THE BILATERAL EYES), TWO TIMES A DAY
     Route: 047
  2. AZORGA [Concomitant]
     Active Substance: BRINZOLAMIDE\TIMOLOL MALEATE
     Indication: GLAUCOMA
     Dosage: DOSE UNKNOWN (ADMINISTERED TO THE BILATERAL EYES), TWO TIMES A DAY
     Route: 047
  3. ATELEC [Concomitant]
     Active Substance: CILNIDIPINE
     Indication: HYPERTENSION
     Route: 048
     Dates: start: 2013
  4. AVOLVE [Concomitant]
     Active Substance: DUTASTERIDE
     Indication: BENIGN PROSTATIC HYPERPLASIA
     Route: 048
     Dates: end: 20150604
  5. NEXIUM [Suspect]
     Active Substance: ESOMEPRAZOLE MAGNESIUM
     Indication: GASTROOESOPHAGEAL REFLUX DISEASE
     Route: 048
     Dates: start: 2015, end: 20150604
  6. TRAVATAN Z [Concomitant]
     Active Substance: TRAVOPROST
     Indication: GLAUCOMA
     Dosage: DOSE UNKNOWN (ADMINISTERED TO THE BILATERAL EYES), EVERY DAY
     Route: 047
  7. OLMETEC [Concomitant]
     Active Substance: OLMESARTAN MEDOXOMIL
     Indication: HYPERTENSION
     Route: 048
     Dates: start: 2013
  8. URIEF [Concomitant]
     Active Substance: SILODOSIN
     Indication: BENIGN PROSTATIC HYPERPLASIA
     Route: 048
  9. UBRETID [Concomitant]
     Active Substance: DISTIGMINE BROMIDE
     Indication: BENIGN PROSTATIC HYPERPLASIA
     Route: 048
     Dates: end: 20150604

REACTIONS (2)
  - Fall [Unknown]
  - Rhabdomyolysis [Recovered/Resolved]

NARRATIVE: CASE EVENT DATE: 20150602
